FAERS Safety Report 17175231 (Version 1)
Quarter: 2019Q4

REPORT INFORMATION
  Report Type: Spontaneous
  Country: US (occurrence: US)
  Receive Date: 20191219
  Receipt Date: 20191219
  Transmission Date: 20200122
  Serious: No
  Sender: FDA-Public Use
  Company Number: US-UCBSA-111262

PATIENT
  Age: 50 Year
  Sex: Male
  Weight: 66.22 kg

DRUGS (4)
  1. CLOBETASOL PROPRINATE [Concomitant]
     Indication: PSORIASIS
     Dosage: STRENGTH: 0.05 % FOR LEGS /ELBOWS
     Dates: start: 2013
  2. CIMZIA [Suspect]
     Active Substance: CERTOLIZUMAB PEGOL
     Indication: CROHN^S DISEASE
     Dates: start: 201312
  3. CIMZIA [Suspect]
     Active Substance: CERTOLIZUMAB PEGOL
     Indication: CROHN^S DISEASE
     Dosage: 400 MG, MONTHLY (QM)
     Dates: start: 201310
  4. FENTANYL. [Concomitant]
     Active Substance: FENTANYL
     Indication: PAIN
     Dosage: FORM: PATCH ; 25 MCG PER HOUR Q 3 DAYS PRN
     Dates: start: 201312

REACTIONS (2)
  - Infection [Unknown]
  - Colonoscopy [Recovered/Resolved]

NARRATIVE: CASE EVENT DATE: 20140114
